FAERS Safety Report 9716068 (Version 5)
Quarter: 2014Q1

REPORT INFORMATION
  Report Type: Report from Study
  Country: TW (occurrence: TW)
  Receive Date: 20131127
  Receipt Date: 20140227
  Transmission Date: 20141002
  Serious: Yes (Life-Threatening, Hospitalization)
  Sender: FDA-Public Use
  Company Number: TW-009507513-1311TWN008981

PATIENT
  Age: 28 Year
  Sex: Male
  Weight: 60 kg

DRUGS (11)
  1. BOCEPREVIR [Suspect]
     Indication: CHRONIC HEPATITIS C
     Dosage: 2400 MG (800 MG, 3 IN 1 D)
     Route: 048
     Dates: start: 20130801, end: 20131113
  2. BOCEPREVIR [Suspect]
     Dosage: DOSE 4 CAPSULES: MORNING, EVENING, AFTERNOON
     Route: 048
     Dates: start: 20131128, end: 20131219
  3. RIBAVIRIN [Suspect]
     Indication: CHRONIC HEPATITIS C
     Dosage: 2CAPSULES,QAM
     Route: 048
     Dates: start: 20130704, end: 20131023
  4. RIBAVIRIN [Suspect]
     Dosage: 2 DF, QPM
     Route: 048
     Dates: start: 20130704, end: 20131023
  5. RIBAVIRIN [Suspect]
     Dosage: 2 CAPSULES EVERY MORNING
     Route: 048
     Dates: start: 20131128, end: 20131219
  6. RIBAVIRIN [Suspect]
     Dosage: 3 CAPSULES EVERY EVENING
     Route: 048
     Dates: start: 20131128, end: 20131219
  7. PEGINTERFERON ALFA-2A [Suspect]
     Indication: CHRONIC HEPATITIS C
     Dosage: 180 MICROGRAM, QW
     Route: 058
     Dates: start: 20130704, end: 20131010
  8. PEGINTERFERON ALFA-2A [Suspect]
     Dosage: 180 MICROGRAM, QW
     Route: 058
     Dates: start: 20131010, end: 20131017
  9. PEGINTERFERON ALFA-2A [Suspect]
     Dosage: 180 MICROGRAM, QW
     Route: 058
     Dates: start: 20131128, end: 20131219
  10. SOLAXIN [Concomitant]
     Indication: MYALGIA
     Dosage: TOTAL DAILY DOSE: 1 TABLET, TID
     Route: 058
     Dates: start: 20131017, end: 20131130
  11. TOPSYM (FLUOCINONIDE) [Concomitant]
     Dosage: UNK
     Dates: start: 20130926

REACTIONS (1)
  - Traumatic haematoma [Recovered/Resolved]
